FAERS Safety Report 25635873 (Version 1)
Quarter: 2025Q3

REPORT INFORMATION
  Report Type: Spontaneous
  Country: US (occurrence: US)
  Receive Date: 20250802
  Receipt Date: 20250802
  Transmission Date: 20251020
  Serious: Yes (Life-Threatening, Hospitalization, Other)
  Sender: AUROBINDO
  Company Number: US-MLMSERVICE-20250716-PI581917-00166-1

PATIENT
  Age: 73 Year
  Sex: Male

DRUGS (5)
  1. GENTAMICIN [Suspect]
     Active Substance: GENTAMICIN
     Indication: Endocarditis bacterial
     Dosage: 60 MILLIGRAM, ONCE A DAY (STARTED ON HOSPITAL DAY 8)
     Route: 042
     Dates: start: 2024, end: 2024
  2. GENTAMICIN [Suspect]
     Active Substance: GENTAMICIN
     Indication: Lactobacillus bacteraemia
  3. AMOXICILLIN [Suspect]
     Active Substance: AMOXICILLIN
     Indication: Antibiotic prophylaxis
     Route: 065
     Dates: start: 2024
  4. AMPICILLIN [Concomitant]
     Active Substance: AMPICILLIN
     Indication: Endocarditis bacterial
     Route: 065
     Dates: start: 2024, end: 2024
  5. AMPICILLIN [Concomitant]
     Active Substance: AMPICILLIN
     Indication: Lactobacillus bacteraemia

REACTIONS (4)
  - Endocarditis bacterial [Recovering/Resolving]
  - Lactobacillus bacteraemia [Recovered/Resolved]
  - Bacterial translocation [Recovered/Resolved]
  - Renal impairment [Unknown]

NARRATIVE: CASE EVENT DATE: 20240101
